FAERS Safety Report 25744658 (Version 2)
Quarter: 2025Q3

REPORT INFORMATION
  Report Type: Report from Study
  Country: US (occurrence: US)
  Receive Date: 20250901
  Receipt Date: 20250902
  Transmission Date: 20251020
  Serious: Yes (Other)
  Sender: BOEHRINGER INGELHEIM
  Company Number: US-Komodo Health-a23aa000009lcKnAAI

PATIENT
  Age: 49 Year
  Sex: Female

DRUGS (1)
  1. CYLTEZO [Suspect]
     Active Substance: ADALIMUMAB-ADBM
     Indication: Product used for unknown indication
     Dates: start: 20241024

REACTIONS (3)
  - Pancreatitis [Unknown]
  - Gastritis [Unknown]
  - Hepatitis [Unknown]
